FAERS Safety Report 24028747 (Version 3)
Quarter: 2025Q2

REPORT INFORMATION
  Report Type: Spontaneous
  Country: US (occurrence: US)
  Receive Date: 20240628
  Receipt Date: 20250408
  Transmission Date: 20250717
  Serious: No
  Sender: SANOFI AVENTIS
  Company Number: US-SA-SAC20240624001406

PATIENT
  Age: 62 Year
  Sex: Female
  Weight: 68 kg

DRUGS (6)
  1. DUPIXENT [Suspect]
     Active Substance: DUPILUMAB
     Indication: Dermatitis atopic
     Dosage: 300 MG, QOW
     Route: 058
  2. VITAMIN C [Concomitant]
     Active Substance: ASCORBIC ACID
  3. HYDROCORTISONE [Concomitant]
     Active Substance: HYDROCORTISONE
  4. FISH OIL [Concomitant]
     Active Substance: FISH OIL
  5. ACETAMINOPHEN\HYDROCODONE [Concomitant]
     Active Substance: ACETAMINOPHEN\HYDROCODONE
  6. METHYLPREDNISOLONE [Concomitant]
     Active Substance: METHYLPREDNISOLONE

REACTIONS (1)
  - Blood glucose abnormal [Unknown]
